FAERS Safety Report 12427434 (Version 9)
Quarter: 2020Q4

REPORT INFORMATION
  Report Type: Other
  Country: CA (occurrence: CA)
  Receive Date: 20160602
  Receipt Date: 20201204
  Transmission Date: 20210113
  Serious: Yes (Hospitalization, Other)
  Sender: FDA-Public Use
  Company Number: CA-ROCHE-1765286

PATIENT
  Age: 45 Year
  Sex: Female

DRUGS (4)
  1. XOLAIR [Suspect]
     Active Substance: OMALIZUMAB
     Route: 058
     Dates: start: 20170215
  2. XOLAIR [Suspect]
     Active Substance: OMALIZUMAB
     Route: 058
     Dates: start: 20180214
  3. XOLAIR [Suspect]
     Active Substance: OMALIZUMAB
     Route: 058
     Dates: start: 20180717
  4. XOLAIR [Suspect]
     Active Substance: OMALIZUMAB
     Indication: ASTHMA
     Route: 058
     Dates: start: 20150807

REACTIONS (12)
  - Influenza [Unknown]
  - Malaise [Unknown]
  - General physical condition abnormal [Unknown]
  - Pneumonia [Unknown]
  - Cough [Unknown]
  - Multiple sclerosis [Unknown]
  - Pyrexia [Unknown]
  - Obstructive airways disorder [Unknown]
  - Pain of skin [Unknown]
  - Back pain [Unknown]
  - Cervical vertebral fracture [Unknown]
  - Forced expiratory volume decreased [Unknown]

NARRATIVE: CASE EVENT DATE: 20160224
